FAERS Safety Report 18191549 (Version 13)
Quarter: 2022Q3

REPORT INFORMATION
  Report Type: Report from Study
  Country: US (occurrence: US)
  Receive Date: 20200825
  Receipt Date: 20220922
  Transmission Date: 20221026
  Serious: Yes (Other)
  Sender: FDA-Public Use
  Company Number: US-SHIRE-US202027493

PATIENT
  Age: 43 Year
  Sex: Female
  Weight: 72.56 kg

DRUGS (21)
  1. HUMAN IMMUNOGLOBULIN G [Suspect]
     Active Substance: HUMAN IMMUNOGLOBULIN G
     Indication: Immune system disorder
     Dosage: 40 GRAM, Q4WEEKS
     Route: 042
     Dates: start: 20171212
  2. HUMAN IMMUNOGLOBULIN G [Suspect]
     Active Substance: HUMAN IMMUNOGLOBULIN G
     Dosage: 40 GRAM, Q4WEEKS
     Route: 042
     Dates: start: 20171214
  3. HUMAN IMMUNOGLOBULIN G [Suspect]
     Active Substance: HUMAN IMMUNOGLOBULIN G
     Dosage: 40 GRAM, Q4WEEKS
     Route: 042
     Dates: start: 20171214
  4. HUMAN IMMUNOGLOBULIN G [Suspect]
     Active Substance: HUMAN IMMUNOGLOBULIN G
     Dosage: 35 GRAM, Q4WEEKS
     Route: 042
     Dates: start: 20171214
  5. AZITHROMYCIN [Concomitant]
     Active Substance: AZITHROMYCIN
     Indication: Product used for unknown indication
     Dosage: UNK
     Route: 065
  6. ACETAMINOPHEN [Concomitant]
     Active Substance: ACETAMINOPHEN
     Indication: Product used for unknown indication
     Dosage: UNK
     Route: 065
  7. DIPHENHYDRAMINE [Concomitant]
     Active Substance: DIPHENHYDRAMINE
     Indication: Product used for unknown indication
     Dosage: UNK
     Route: 065
  8. SODIUM CHLORIDE [Concomitant]
     Active Substance: SODIUM CHLORIDE
     Indication: Product used for unknown indication
     Dosage: UNK
     Route: 065
  9. EPINEPHRINE [Concomitant]
     Active Substance: EPINEPHRINE
     Indication: Product used for unknown indication
     Dosage: UNK
     Route: 065
  10. MUCINEX D [Concomitant]
     Active Substance: GUAIFENESIN\PSEUDOEPHEDRINE HYDROCHLORIDE
     Indication: Product used for unknown indication
     Dosage: UNK
     Route: 065
  11. XYLOMETAZOLINE HYDROCHLORIDE [Concomitant]
     Active Substance: XYLOMETAZOLINE HYDROCHLORIDE
     Indication: Product used for unknown indication
     Dosage: UNK
     Route: 065
  12. CLARITHROMYCIN [Concomitant]
     Active Substance: CLARITHROMYCIN
     Indication: Product used for unknown indication
     Dosage: UNK
     Route: 065
  13. TYLENOL [Concomitant]
     Active Substance: ACETAMINOPHEN
     Indication: Product used for unknown indication
     Dosage: UNK
     Route: 065
  14. LO LOESTRIN FE [Concomitant]
     Active Substance: ETHINYL ESTRADIOL\NORETHINDRONE ACETATE
     Indication: Product used for unknown indication
     Dosage: UNK
     Route: 065
  15. BUDESONIDE [Concomitant]
     Active Substance: BUDESONIDE
  16. PROPRANOLOL [Concomitant]
     Active Substance: PROPRANOLOL HYDROCHLORIDE
  17. AMOXICILLIN [Concomitant]
     Active Substance: AMOXICILLIN
  18. LOESTRIN NOS [Concomitant]
     Active Substance: ETHINYL ESTRADIOL\NORETHINDRONE ACETATE
  19. BANOPHEN [Concomitant]
     Active Substance: DIPHENHYDRAMINE HYDROCHLORIDE
  20. TYLENOL EXTRA STRENGTH [Concomitant]
     Active Substance: ACETAMINOPHEN
  21. METHIMAZOLE [Concomitant]
     Active Substance: METHIMAZOLE

REACTIONS (18)
  - Basedow^s disease [Unknown]
  - Palpitations [Unknown]
  - Tremor [Unknown]
  - Rash pruritic [Unknown]
  - Hypersensitivity [Unknown]
  - Erythema [Unknown]
  - Infusion related reaction [Unknown]
  - Nausea [Unknown]
  - Headache [Unknown]
  - Ocular discomfort [Unknown]
  - Sputum discoloured [Unknown]
  - Nasal congestion [Unknown]
  - Upper-airway cough syndrome [Unknown]
  - Endodontic procedure [Unknown]
  - Illness [Unknown]
  - Sinusitis [Unknown]
  - Fatigue [Unknown]
  - COVID-19 [Recovered/Resolved]

NARRATIVE: CASE EVENT DATE: 20210514
